FAERS Safety Report 23326832 (Version 1)
Quarter: 2023Q4

REPORT INFORMATION
  Report Type: Report from Study
  Country: GB (occurrence: GB)
  Receive Date: 20231221
  Receipt Date: 20231221
  Transmission Date: 20240109
  Serious: Yes (Other)
  Sender: FDA-Public Use
  Company Number: GB-SAMSUNG BIOEPIS-SB-2023-20961

PATIENT
  Sex: Male

DRUGS (1)
  1. IMRALDI [Suspect]
     Active Substance: ADALIMUMAB
     Indication: Axial spondyloarthritis
     Dosage: 40 MG/0.8 ML;
     Route: 058
     Dates: start: 20230619

REACTIONS (4)
  - Lower respiratory tract infection [Unknown]
  - Viral infection [Not Recovered/Not Resolved]
  - Dyspnoea [Unknown]
  - Cough [Unknown]
